FAERS Safety Report 8392889-9 (Version None)
Quarter: 2012Q2

REPORT INFORMATION
  Report Type: 
  Country: None (occurrence: None)
  Receive Date: 20120529
  Receipt Date: 20120521
  Transmission Date: 20120825
  Serious: Yes (Hospitalization)
  Sender: FDA-Public Use
  Company Number: IL-UCBSA-017848

PATIENT
  Age: 79 Year
  Sex: Male
  Weight: 76 kg

DRUGS (14)
  1. CIMZIA [Suspect]
     Indication: RHEUMATOID ARTHRITIS
     Dosage: STUDY: CDP870-27, NBR OF DOSES: 26
     Route: 058
     Dates: start: 20050815, end: 20060731
  2. FOLIC ACID [Concomitant]
     Indication: RHEUMATOID ARTHRITIS
     Route: 048
     Dates: start: 20000101
  3. AMLODIPINE [Concomitant]
     Indication: HYPERTENSION
     Route: 048
     Dates: start: 20080101
  4. CALCIUM [Concomitant]
     Indication: OSTEOPOROSIS
     Route: 048
     Dates: start: 20070101
  5. ASPIRIN [Concomitant]
     Indication: HYPERTENSION
     Route: 048
     Dates: start: 20040101
  6. RENITENS [Concomitant]
     Indication: HYPERTENSION
     Route: 048
     Dates: start: 20040101
  7. OMEPRAZOLE [Concomitant]
     Indication: PEPTIC ULCER
     Route: 048
     Dates: start: 20060101
  8. ATENOLOL [Concomitant]
     Indication: HYPERTENSION
     Route: 048
     Dates: start: 20040101
  9. RAMIPRIL [Concomitant]
     Indication: HYPERTENSION
     Route: 048
     Dates: start: 20080101
  10. CIMZIA [Suspect]
     Route: 058
     Dates: end: 20100821
  11. CARTIA XT [Concomitant]
     Indication: CEREBROVASCULAR ACCIDENT
     Route: 048
     Dates: start: 20040101
  12. METHOTREXATE [Concomitant]
     Indication: RHEUMATOID ARTHRITIS
     Route: 048
     Dates: start: 20000101
  13. CIMZIA [Suspect]
     Route: 058
     Dates: start: 20060814, end: 20071230
  14. SIMVASTATIN [Concomitant]
     Indication: CEREBROVASCULAR ACCIDENT
     Route: 048
     Dates: start: 20080101

REACTIONS (2)
  - ARTHRITIS INFECTIVE [None]
  - ANORECTAL INFECTION [None]
